FAERS Safety Report 17113353 (Version 2)
Quarter: 2020Q1

REPORT INFORMATION
  Report Type: Spontaneous
  Country: JP (occurrence: JP)
  Receive Date: 20191204
  Receipt Date: 20200110
  Transmission Date: 20200409
  Serious: Yes (Death, Other)
  Sender: FDA-Public Use
  Company Number: JP-AMGEN-JPNSP2019201076

PATIENT
  Age: 60 Year
  Sex: Male

DRUGS (1)
  1. VECTIBIX [Suspect]
     Active Substance: PANITUMUMAB
     Indication: COLORECTAL CANCER RECURRENT
     Dosage: UNK
     Route: 065
     Dates: start: 20191025

REACTIONS (2)
  - Disease progression [Fatal]
  - Colorectal cancer recurrent [Fatal]
